FAERS Safety Report 5776115-2 (Version None)
Quarter: 2008Q2

REPORT INFORMATION
  Report Type: 
  Country: None (occurrence: None)
  Receive Date: 20080617
  Receipt Date: 20080514
  Transmission Date: 20081010
  Serious: Yes (Disabling)
  Sender: FDA-Public Use
  Company Number: CH-GENENTECH-261439

PATIENT
  Sex: Male

DRUGS (2)
  1. BEVACIZUMAB [Suspect]
     Indication: ACUTE MYELOID LEUKAEMIA
     Dosage: 3 UNIT, QD
     Route: 042
     Dates: start: 20080408
  2. CYTOSAR [Suspect]
     Indication: ACUTE MYELOID LEUKAEMIA
     Dosage: 11 UNIT, QD
     Route: 042
     Dates: start: 20080408

REACTIONS (5)
  - CEREBELLAR SYNDROME [None]
  - DYSKINESIA [None]
  - INFLAMMATION [None]
  - NERVOUS SYSTEM DISORDER [None]
  - PYREXIA [None]
